FAERS Safety Report 10082561 (Version 1)
Quarter: 2014Q2

REPORT INFORMATION
  Report Type: Spontaneous
  Country: US (occurrence: US)
  Receive Date: 20140416
  Receipt Date: 20140416
  Transmission Date: 20141212
  Serious: No
  Sender: FDA-Public Use
  Company Number: US-TEVA-476340USA

PATIENT
  Age: 19 Year
  Sex: Female
  Weight: 58.11 kg

DRUGS (5)
  1. PLAN B ONE-STEP [Suspect]
     Indication: POST COITAL CONTRACEPTION
     Dosage: 1.5 MILLIGRAM DAILY;
     Route: 048
     Dates: start: 201302, end: 201302
  2. IBUPROFEN [Concomitant]
     Indication: BACK PAIN
  3. IBUPROFEN [Concomitant]
     Indication: ARTHRALGIA
  4. MELATONIN [Concomitant]
     Indication: INSOMNIA
  5. RANITIDINE [Concomitant]
     Indication: NAUSEA

REACTIONS (2)
  - Nausea [Recovered/Resolved]
  - Headache [Recovered/Resolved]
